FAERS Safety Report 5469524-2 (Version None)
Quarter: 2007Q3

REPORT INFORMATION
  Report Type: 
  Country: None (occurrence: None)
  Receive Date: 20070820
  Receipt Date: 20070507
  Transmission Date: 20080115
  Serious: No
  Sender: FDA-Public Use
  Company Number: WAES 0705USA01426

PATIENT
  Age: 70 Year
  Sex: Female

DRUGS (8)
  1. JANUVIA [Suspect]
     Indication: DIABETES MELLITUS
     Dosage: 100 MG/DAILY/PO
     Route: 048
     Dates: start: 20070124, end: 20070202
  2. AMARYL [Concomitant]
  3. AVALIDE [Concomitant]
  4. GLUCOPHAGE [Concomitant]
  5. LANTUS [Concomitant]
  6. LIPITOR [Concomitant]
  7. SINGULAIR [Concomitant]
  8. TOPROL-XL [Concomitant]

REACTIONS (1)
  - PRURITUS [None]
